FAERS Safety Report 10203724 (Version 2)
Quarter: 2014Q2

REPORT INFORMATION
  Report Type: Spontaneous
  Country: GB (occurrence: None)
  Receive Date: 20140523
  Receipt Date: 20140619
  Transmission Date: 20141212
  Serious: Yes (Other)
  Sender: FDA-Public Use
  Company Number: AUR-APL-2014-05989

PATIENT
  Age: 83 Year
  Sex: Female

DRUGS (12)
  1. CLOPIDOGREL [Suspect]
     Indication: ATRIAL FIBRILLATION
     Route: 048
     Dates: start: 20140211, end: 20140302
  2. BISOPROLOL (BISOPROLOL) [Concomitant]
  3. CO-AMILOFRUSE (AMILORIDE HYDROCHLORIDE, FUROSEMIDE) [Concomitant]
  4. DARIFENACIN (DARIFENACIN) [Concomitant]
  5. GLIMEPIRIDE (GLIMEPIRIDE) [Concomitant]
  6. ISOSORBIDE MONONITRATE (ISOSORBIDE MONONITRATE) [Concomitant]
  7. LACIDIPINE (LACIDIPINE) [Concomitant]
  8. LANSOPRAZOLE (LANSOPRAZAOLE) [Concomitant]
  9. LAXIDO (ELECTROLYTES NOS, MACROGOL 3350) [Concomitant]
  10. LOSARTAN (LOSARTAN) [Concomitant]
  11. TRANYLCYPROMINE (TRANYLCYPROMINE) [Concomitant]
  12. TRIFLUOPERAZINE (TRIFLUOPERAZINE) [Concomitant]

REACTIONS (2)
  - Haematochezia [None]
  - Off label use [None]
